FAERS Safety Report 6929231-3 (Version None)
Quarter: 2010Q3

REPORT INFORMATION
  Report Type: 
  Country: None (occurrence: None)
  Receive Date: 20100813
  Receipt Date: 20100803
  Transmission Date: 20110219
  Serious: No
  Sender: FDA-Public Use
  Company Number: 016729

PATIENT
  Sex: Female
  Weight: 66 kg

DRUGS (1)
  1. KEPPRA [Suspect]
     Indication: CONVULSION
     Dosage: (1500 MG BID ORAL)
     Route: 048

REACTIONS (5)
  - FEELING ABNORMAL [None]
  - GRAND MAL CONVULSION [None]
  - PRODUCT QUALITY ISSUE [None]
  - PRODUCT SHAPE ISSUE [None]
  - TABLET ISSUE [None]
